FAERS Safety Report 23243228 (Version 2)
Quarter: 2023Q4

REPORT INFORMATION
  Report Type: Report from Study
  Country: US (occurrence: US)
  Receive Date: 20231130
  Receipt Date: 20231211
  Transmission Date: 20240110
  Serious: Yes (Other)
  Sender: FDA-Public Use
  Company Number: US-ALXN-202311USA001454US

PATIENT
  Sex: Male

DRUGS (1)
  1. STRENSIQ [Suspect]
     Active Substance: ASFOTASE ALFA
     Indication: Product used for unknown indication
     Dosage: UNK
     Route: 065

REACTIONS (6)
  - Blood phosphorus increased [Unknown]
  - Skeletal survey abnormal [Unknown]
  - Ultrasound scan abnormal [Unknown]
  - Toe walking [Unknown]
  - Injection site reaction [Unknown]
  - Cough [Unknown]

NARRATIVE: CASE EVENT DATE: 20230331
